FAERS Safety Report 10380803 (Version 7)
Quarter: 2015Q1

REPORT INFORMATION
  Report Type: Spontaneous
  Country: US (occurrence: US)
  Receive Date: 20140813
  Receipt Date: 20150325
  Transmission Date: 20150720
  Serious: Yes (Hospitalization, Other)
  Sender: FDA-Public Use
  Company Number: US-UNITED THERAPEUTICS-UNT-2014-005317

PATIENT
  Age: 56 Year
  Sex: Female
  Weight: 66.21 kg

DRUGS (10)
  1. REMODULIN [Suspect]
     Active Substance: TREPROSTINIL
     Dosage: UNK
     Route: 058
     Dates: start: 20140724
  2. REMODULIN [Suspect]
     Active Substance: TREPROSTINIL
     Dosage: 0.100 ?G/KG/MIN, CONTINUING
     Route: 058
     Dates: start: 20140730
  3. LETAIRIS [Suspect]
     Active Substance: AMBRISENTAN
     Indication: PULMONARY HYPERTENSION
  4. REMODULIN [Suspect]
     Active Substance: TREPROSTINIL
     Indication: COR PULMONALE CHRONIC
     Dosage: 0.100 ?G/KG, CONTINUING
     Route: 058
     Dates: start: 20120529
  5. REMODULIN [Suspect]
     Active Substance: TREPROSTINIL
     Dosage: UNK
     Route: 041
     Dates: start: 20140804, end: 20140814
  6. REMODULIN [Suspect]
     Active Substance: TREPROSTINIL
     Dosage: UNK
     Route: 058
     Dates: start: 20140801
  7. LETAIRIS [Suspect]
     Active Substance: AMBRISENTAN
     Indication: PULMONARY ARTERIAL HYPERTENSION
     Dosage: 10 MG, QD
     Dates: start: 20131003
  8. REMODULIN [Suspect]
     Active Substance: TREPROSTINIL
     Dosage: 0.1 ?G/KG, CONTINUING
     Route: 058
     Dates: start: 20120605
  9. ADCIRCA [Concomitant]
     Active Substance: TADALAFIL
     Indication: PRODUCT USED FOR UNKNOWN INDICATION
  10. WARFARIN [Concomitant]
     Active Substance: WARFARIN
     Indication: PRODUCT USED FOR UNKNOWN INDICATION

REACTIONS (4)
  - Infusion site pruritus [Unknown]
  - Infusion site pain [Not Recovered/Not Resolved]
  - Chest pain [Unknown]
  - Right ventricular failure [Unknown]

NARRATIVE: CASE EVENT DATE: 201408
